FAERS Safety Report 11669680 (Version 1)
Quarter: 2015Q4

REPORT INFORMATION
  Report Type: Spontaneous
  Country: US (occurrence: US)
  Receive Date: 20151027
  Receipt Date: 20151027
  Transmission Date: 20160304
  Serious: Yes (Life-Threatening, Hospitalization, Other)
  Sender: FDA-Public Use
  Company Number: PHHY2015US136254

PATIENT
  Age: 20 Year
  Sex: Male
  Weight: 89.98 kg

DRUGS (6)
  1. TOPOTECAN [Suspect]
     Active Substance: TOPOTECAN\TOPOTECAN HYDROCHLORIDE
     Dosage: DAYS 1 TO 5, (TOTAL DOSE ADMINISTERED THIS COARSE WAS 8 MG)
     Route: 065
     Dates: start: 20150406, end: 20150410
  2. TOPOTECAN [Suspect]
     Active Substance: TOPOTECAN\TOPOTECAN HYDROCHLORIDE
     Indication: OSTEOSARCOMA METASTATIC
     Dosage: UNK
     Route: 065
     Dates: start: 20150316
  3. CYCLOPHOSPHAMIDE. [Suspect]
     Active Substance: CYCLOPHOSPHAMIDE
     Indication: OSTEOSARCOMA METASTATIC
     Dosage: UNK
     Route: 065
     Dates: start: 20150316
  4. CRIZOTINIB [Suspect]
     Active Substance: CRIZOTINIB
     Indication: OSTEOSARCOMA METASTATIC
     Dosage: UNK
     Route: 065
     Dates: start: 20150316
  5. CRIZOTINIB [Suspect]
     Active Substance: CRIZOTINIB
     Dosage: 215 MG/M2, BID (ON DAYS 1 TO 21, TOTAL DOSE ADMINISTERED THIS COURSE 5850 MG)
     Route: 065
     Dates: start: 20150406, end: 20150412
  6. CYCLOPHOSPHAMIDE. [Suspect]
     Active Substance: CYCLOPHOSPHAMIDE
     Dosage: (ON DAYS 1 TO 21, TOTAL DOSE ADMINISTERED THIS COURSE 2650 MG)
     Route: 065
     Dates: start: 20150406, end: 20150410

REACTIONS (7)
  - Excoriation [Unknown]
  - Erythema [Unknown]
  - Skin infection [Unknown]
  - Neutropenia [Unknown]
  - Cellulitis [Unknown]
  - Hypotension [Unknown]
  - Pyrexia [Unknown]

NARRATIVE: CASE EVENT DATE: 20150410
